FAERS Safety Report 8300745-7 (Version None)
Quarter: 2012Q2

REPORT INFORMATION
  Report Type: 
  Country: None (occurrence: None)
  Receive Date: 20120420
  Receipt Date: 20120416
  Transmission Date: 20120825
  Serious: Yes (Death, Hospitalization, Other)
  Sender: FDA-Public Use
  Company Number: PHEH2012US001930

PATIENT
  Sex: Female

DRUGS (2)
  1. EXJADE [Suspect]
     Dosage: 3 DFDAILY
     Route: 048
     Dates: start: 20111209
  2. EXJADE [Suspect]
     Indication: IRON OVERLOAD
     Dosage: 1500 MG, DAILY
     Route: 048
     Dates: start: 20090217

REACTIONS (32)
  - SERUM FERRITIN INCREASED [None]
  - NEUTROPHIL COUNT DECREASED [None]
  - DEATH [None]
  - PAIN [None]
  - MYOCARDIAL INFARCTION [None]
  - FALL [None]
  - ABDOMINAL DISTENSION [None]
  - SLOW RESPONSE TO STIMULI [None]
  - EXTREMITY CONTRACTURE [None]
  - HAEMOGLOBIN DECREASED [None]
  - PLATELET COUNT INCREASED [None]
  - REVERSIBLE ISCHAEMIC NEUROLOGICAL DEFICIT [None]
  - ACUTE CHEST SYNDROME [None]
  - ABDOMINAL PAIN [None]
  - CARDIO-RESPIRATORY ARREST [None]
  - BLOOD UREA INCREASED [None]
  - GASTROINTESTINAL SOUNDS ABNORMAL [None]
  - HAEMATOCRIT DECREASED [None]
  - CEREBROVASCULAR ACCIDENT [None]
  - INTESTINAL ISCHAEMIA [None]
  - BLOOD CREATININE INCREASED [None]
  - ILEUS [None]
  - PULMONARY EMBOLISM [None]
  - SICKLE CELL ANAEMIA WITH CRISIS [None]
  - RENAL FAILURE ACUTE [None]
  - PANCREATITIS [None]
  - WEIGHT DECREASED [None]
  - RESPIRATORY FAILURE [None]
  - URINE OUTPUT DECREASED [None]
  - HYPOTENSION [None]
  - DYSPHAGIA [None]
  - CONSTIPATION [None]
